FAERS Safety Report 20942794 (Version 1)
Quarter: 2022Q2

REPORT INFORMATION
  Report Type: Spontaneous
  Country: CA (occurrence: CA)
  Receive Date: 20220610
  Receipt Date: 20220610
  Transmission Date: 20220721
  Serious: Yes (Other)
  Sender: FDA-Public Use
  Company Number: CA-BAXTER-2022BAX010705

PATIENT

DRUGS (1)
  1. SODIUM CHLORIDE [Suspect]
     Active Substance: SODIUM CHLORIDE
     Dosage: UNK, PERIPHERAL IV
     Route: 042

REACTIONS (2)
  - Cerebrovascular accident [Recovering/Resolving]
  - Air embolism [Recovering/Resolving]

NARRATIVE: CASE EVENT DATE: 20220109
